FAERS Safety Report 16833257 (Version 1)
Quarter: 2019Q3

REPORT INFORMATION
  Report Type: Spontaneous
  Country: KR (occurrence: KR)
  Receive Date: 20190920
  Receipt Date: 20190920
  Transmission Date: 20191005
  Serious: Yes (Other)
  Sender: FDA-Public Use
  Company Number: KR-ACTELION-A-CH2019-195834

PATIENT
  Age: 24 Year
  Sex: Female

DRUGS (1)
  1. TRACLEER [Suspect]
     Active Substance: BOSENTAN
     Indication: PULMONARY ARTERIAL HYPERTENSION
     Dosage: UNK
     Route: 048
     Dates: start: 200702, end: 201609

REACTIONS (3)
  - Angioplasty [Unknown]
  - Pulmonary arterial hypertension [Recovering/Resolving]
  - Ventricular septal defect repair [Unknown]
